FAERS Safety Report 24176799 (Version 2)
Quarter: 2024Q3

REPORT INFORMATION
  Report Type: Report from Study
  Country: US (occurrence: US)
  Receive Date: 20240806
  Receipt Date: 20240814
  Transmission Date: 20241017
  Serious: Yes (Other)
  Sender: ELI LILLY AND CO
  Company Number: US-ELI_LILLY_AND_COMPANY-US202408002027

PATIENT
  Age: 63 Year
  Sex: Female

DRUGS (8)
  1. RETEVMO [Suspect]
     Active Substance: SELPERCATINIB
     Indication: Lung carcinoma cell type unspecified stage IV
     Dosage: 160 MG, BID
     Route: 048
     Dates: start: 20240223, end: 2024
  2. RETEVMO [Suspect]
     Active Substance: SELPERCATINIB
     Indication: Brain neoplasm
     Dosage: 120 MG, BID
     Route: 048
     Dates: start: 2024
  3. AMLODIPINE [Suspect]
     Active Substance: AMLODIPINE BESYLATE
     Indication: Hypertension
     Dosage: UNK UNK, UNKNOWN
     Route: 065
  4. DECADRON [Suspect]
     Active Substance: DEXAMETHASONE
     Indication: Brain neoplasm
     Dosage: UNK UNK, UNKNOWN
     Route: 065
  5. DECADRON [Suspect]
     Active Substance: DEXAMETHASONE
     Indication: Lung carcinoma cell type unspecified stage IV
  6. XANAX [Concomitant]
     Active Substance: ALPRAZOLAM
     Indication: Product used for unknown indication
     Dosage: UNK UNK, UNKNOWN
     Route: 065
  7. ZOLPIDEM [Concomitant]
     Active Substance: ZOLPIDEM TARTRATE
     Indication: Insomnia
     Dosage: UNK UNK, UNKNOWN
     Route: 065
  8. PANTOPRAZOLE [Concomitant]
     Active Substance: PANTOPRAZOLE
     Indication: Gastrooesophageal reflux disease
     Dosage: UNK UNK, UNKNOWN
     Route: 065

REACTIONS (10)
  - Hypertension [Not Recovered/Not Resolved]
  - Tinnitus [Recovering/Resolving]
  - Flatulence [Not Recovered/Not Resolved]
  - Eructation [Not Recovered/Not Resolved]
  - Mental impairment [Unknown]
  - Epistaxis [Recovered/Resolved]
  - Weight increased [Unknown]
  - Oedema peripheral [Not Recovered/Not Resolved]
  - Abdominal pain upper [Not Recovered/Not Resolved]
  - Headache [Unknown]

NARRATIVE: CASE EVENT DATE: 20240101
